FAERS Safety Report 5006426-X (Version None)
Quarter: 2006Q2

REPORT INFORMATION
  Report Type: 
  Country: None (occurrence: None)
  Receive Date: 20060516
  Receipt Date: 20060503
  Transmission Date: 20061013
  Serious: Yes (Hospitalization)
  Sender: FDA-Public Use
  Company Number: 224682

PATIENT
  Age: 55 Year
  Sex: Male

DRUGS (3)
  1. RAPTIVA [Suspect]
     Indication: PSORIASIS
     Dosage: 1/WEEK
     Dates: start: 20060301
  2. LANTUS [Concomitant]
  3. HUMULIN (INSULIN HUMAN) [Concomitant]

REACTIONS (9)
  - ALCOHOL USE [None]
  - BLOOD BILIRUBIN INCREASED [None]
  - BLOOD GLUCOSE DECREASED [None]
  - COMA [None]
  - DRUG TOXICITY [None]
  - FATIGUE [None]
  - JAUNDICE [None]
  - OEDEMA PERIPHERAL [None]
  - SOMNOLENCE [None]
